FAERS Safety Report 12326274 (Version 1)
Quarter: 2016Q2

REPORT INFORMATION
  Report Type: Spontaneous
  Country: US (occurrence: None)
  Receive Date: 20160502
  Receipt Date: 20160502
  Transmission Date: 20160815
  Serious: Yes (Disabling)
  Sender: FDA-Public Use
  Company Number: None

PATIENT
  Age: 36 Year
  Sex: Female
  Weight: 77.11 kg

DRUGS (1)
  1. NEXPLANON [Suspect]
     Active Substance: ETONOGESTREL
     Indication: CONTRACEPTION
     Dosage: GIVEN INTO/UNDER THE SKIN
     Route: 058
     Dates: start: 20151020, end: 20160427

REACTIONS (6)
  - Muscle spasms [None]
  - Menorrhagia [None]
  - Depression [None]
  - Crying [None]
  - Nausea [None]
  - Abdominal pain [None]
